FAERS Safety Report 5094481-0 (Version None)
Quarter: 2006Q3

REPORT INFORMATION
  Report Type: 
  Country: None (occurrence: None)
  Receive Date: 20060830
  Receipt Date: 20060811
  Transmission Date: 20061208
  Serious: Yes (Hospitalization)
  Sender: FDA-Public Use
  Company Number: DE200608003143

PATIENT
  Age: 76 Year
  Sex: Female

DRUGS (2)
  1. GEMZAR [Suspect]
     Indication: PANCREATIC CARCINOMA
     Dosage: 1000 MG/M2, DAILY (1/D), INTRAVENOUS
     Route: 042
     Dates: start: 20060301, end: 20060717
  2. DECORTIN (PREDNISONE) [Concomitant]

REACTIONS (4)
  - CAPILLARY LEAK SYNDROME [None]
  - HYPOKALAEMIA [None]
  - PLEURAL EFFUSION [None]
  - WEIGHT INCREASED [None]
